FAERS Safety Report 4855279-9 (Version None)
Quarter: 2005Q4

REPORT INFORMATION
  Report Type: 
  Country: None (occurrence: None)
  Receive Date: 20051214
  Receipt Date: 20051128
  Transmission Date: 20060501
  Serious: Yes (Hospitalization, Other)
  Sender: FDA-Public Use
  Company Number: USA041184629

PATIENT
  Age: 79 Year
  Sex: Female
  Weight: 41.4 kg

DRUGS (15)
  1. FORTEO [Suspect]
     Indication: BONE DISORDER
     Dates: start: 20040901
  2. FORTEO [Suspect]
  3. FORTEO PEN, 250MCG/ML (3ML) (FORTEO PEN 250MCG/ML (3ML)) PEN, DISPOSAB [Concomitant]
  4. FORTEO PEN, 250MCG/ML (3ML) (FORTEO PEN 250MCG/ML (3ML)) PEN, DISPOSAB [Concomitant]
  5. FORTEO PEN, 250MCG/ML (3ML) (FORTEO PEN 250MCG/ML (3ML)) PEN, DISPOSAB [Concomitant]
  6. FORTEO PEN, 250MCG/ML (3ML) (FORTEO PEN 250MCG/ML (3ML)) PEN, DISPOSAB [Concomitant]
  7. FORTEO PEN, 250MCG/ML (3ML) (FORTEO PEN 250MCG/ML (3ML)) PEN, DISPOSAB [Concomitant]
  8. ALLERGY SHOT (ALLERGY SHOT) [Concomitant]
  9. COUGH SYRUP WITH CODEINE [Concomitant]
  10. VITAMINS [Concomitant]
  11. CALTRATE (CALCIUM CARBONATE) [Concomitant]
  12. FOLIC ACID [Concomitant]
  13. SELENIUM (SELENIUM) [Concomitant]
  14. MAGNESIUM (MAGNESIUM) [Concomitant]
  15. CENTRUM SILVER (ASCORBIC ACID, CALCIUM, MINERALS NOS, RETINOL, TOCOPHE [Concomitant]

REACTIONS (15)
  - ALOPECIA [None]
  - BACK PAIN [None]
  - CONDITION AGGRAVATED [None]
  - CONTUSION [None]
  - EYE HAEMORRHAGE [None]
  - FATIGUE [None]
  - HAIR TEXTURE ABNORMAL [None]
  - HEADACHE [None]
  - INSOMNIA [None]
  - MUSCLE SPASMS [None]
  - PAIN IN EXTREMITY [None]
  - PHARMACEUTICAL PRODUCT COMPLAINT [None]
  - RETINAL VASCULAR DISORDER [None]
  - ROAD TRAFFIC ACCIDENT [None]
  - STRESS [None]
